FAERS Safety Report 5728304-0 (Version None)
Quarter: 2008Q2

REPORT INFORMATION
  Report Type: 
  Country: None (occurrence: None)
  Receive Date: 20080502
  Receipt Date: 20080502
  Transmission Date: 20081010
  Serious: Yes (Other)
  Sender: FDA-Public Use
  Company Number: None

PATIENT
  Sex: Female
  Weight: 63.9572 kg

DRUGS (1)
  1. XYZAL [Suspect]
     Indication: MULTIPLE ALLERGIES
     Dosage: 1 TABLET 1 ONCE BEFORE BED PO
     Route: 048
     Dates: start: 20080321, end: 20080421

REACTIONS (7)
  - ASTHENIA [None]
  - BALANCE DISORDER [None]
  - CONFUSIONAL STATE [None]
  - DRY MOUTH [None]
  - FATIGUE [None]
  - MENTAL IMPAIRMENT [None]
  - SOMNOLENCE [None]
